FAERS Safety Report 4907935-1 (Version None)
Quarter: 2006Q1

REPORT INFORMATION
  Report Type: 
  Country: None (occurrence: None)
  Receive Date: 20060208
  Receipt Date: 20060123
  Transmission Date: 20060701
  Serious: Yes (Hospitalization)
  Sender: FDA-Public Use
  Company Number: DSA_27682_2006

PATIENT
  Age: 56 Year
  Sex: Female

DRUGS (1)
  1. TAVOR [Suspect]
     Dosage: 50 MG ONCE PO
     Route: 048
     Dates: start: 20060123, end: 20060123

REACTIONS (4)
  - BLOOD POTASSIUM INCREASED [None]
  - OVERDOSE [None]
  - SOMNOLENCE [None]
  - SUICIDE ATTEMPT [None]
